FAERS Safety Report 13358990 (Version 1)
Quarter: 2017Q1

REPORT INFORMATION
  Report Type: Spontaneous
  Country: US (occurrence: US)
  Receive Date: 20170322
  Receipt Date: 20170322
  Transmission Date: 20170429
  Serious: No
  Sender: FDA-Public Use
  Company Number: US-BAYER-2017-054350

PATIENT
  Age: 4 Year
  Sex: Male
  Weight: 15 kg

DRUGS (2)
  1. MIRALAX [Suspect]
     Active Substance: POLYETHYLENE GLYCOL 3350
     Indication: CONSTIPATION
     Dosage: 5 CAPFULL TO 1 CAP FULL A DAY
     Route: 048
     Dates: start: 20170309, end: 20170319
  2. BENADRYL [Concomitant]
     Active Substance: DIPHENHYDRAMINE HYDROCHLORIDE

REACTIONS (3)
  - Product use issue [Unknown]
  - Drug administered to patient of inappropriate age [Unknown]
  - Product use issue [Unknown]

NARRATIVE: CASE EVENT DATE: 20170309
